FAERS Safety Report 10401883 (Version 1)
Quarter: 2014Q3

REPORT INFORMATION
  Report Type: Spontaneous
  Country: US (occurrence: None)
  Receive Date: 20140813
  Receipt Date: 20140813
  Transmission Date: 20150326
  Serious: Yes (Other)
  Sender: FDA-Public Use
  Company Number: NXG-14-010

PATIENT
  Age: 60 Year
  Sex: Male

DRUGS (6)
  1. ALPHA LIPOIC [Concomitant]
  2. WARFARIN [Concomitant]
     Active Substance: WARFARIN
  3. CITRACAL [Concomitant]
     Active Substance: CALCIUM CITRATE
  4. RANIDITINE [Concomitant]
  5. METROPOLOL [Concomitant]
     Active Substance: METOPROLOL
  6. MAG OX [Suspect]
     Active Substance: MAGNESIUM OXIDE

REACTIONS (2)
  - Drug interaction [None]
  - Gastric disorder [None]
